FAERS Safety Report 17982830 (Version 1)
Quarter: 2020Q3

REPORT INFORMATION
  Report Type: Spontaneous
  Country: CA (occurrence: CA)
  Receive Date: 20200706
  Receipt Date: 20200706
  Transmission Date: 20201103
  Serious: Yes (Hospitalization, Other)
  Sender: FDA-Public Use
  Company Number: CA-TEVA-2020-CA-1796633

PATIENT
  Age: 13 Year
  Sex: Female

DRUGS (21)
  1. VINCRISTINE SULFATE. [Suspect]
     Active Substance: VINCRISTINE SULFATE
     Route: 042
  2. DOXORUBICIN HYDROCHLORIDE  INJECTION [Suspect]
     Active Substance: DOXORUBICIN HYDROCHLORIDE
     Route: 042
  3. METHOTREXATE. [Suspect]
     Active Substance: METHOTREXATE
     Route: 037
  4. CYCLOPHOSPHAMIDE. [Suspect]
     Active Substance: CYCLOPHOSPHAMIDE
     Dosage: 750 MILLIGRAM DAILY;
     Route: 042
  5. DIMENHYDRINATE. [Concomitant]
     Active Substance: DIMENHYDRINATE
  6. FAMOTIDINE. [Concomitant]
     Active Substance: FAMOTIDINE
  7. FUROSEMIDE. [Concomitant]
     Active Substance: FUROSEMIDE
  8. HEPARIN CALCIUM [Concomitant]
     Active Substance: HEPARIN CALCIUM
  9. LEUPROLIDE [Concomitant]
     Active Substance: LEUPROLIDE
  10. DIPHENHYDRAMINE. [Concomitant]
     Active Substance: DIPHENHYDRAMINE
  11. METHOTREXATE. [Suspect]
     Active Substance: METHOTREXATE
     Route: 037
  12. METHOTREXATE. [Suspect]
     Active Substance: METHOTREXATE
     Route: 037
  13. VINCRISTINE SULFATE. [Suspect]
     Active Substance: VINCRISTINE SULFATE
     Route: 042
  14. RITUXAN [Suspect]
     Active Substance: RITUXIMAB
     Route: 042
  15. ALLOPURINOL. [Concomitant]
     Active Substance: ALLOPURINOL
  16. HYDROMORPHONE [Concomitant]
     Active Substance: HYDROMORPHONE
  17. KETAMINE (UNKNOWN) [Concomitant]
     Active Substance: KETAMINE
  18. METHOTREXATE. [Suspect]
     Active Substance: METHOTREXATE
     Route: 042
  19. CYCLOPHOSPHAMIDE. [Suspect]
     Active Substance: CYCLOPHOSPHAMIDE
     Indication: BURKITT^S LYMPHOMA
     Route: 042
  20. HYDROCORTISONE. [Concomitant]
     Active Substance: HYDROCORTISONE
  21. MORPHINE [Concomitant]
     Active Substance: MORPHINE
     Route: 065

REACTIONS (1)
  - Pancytopenia [Unknown]
